FAERS Safety Report 7403446-2 (Version None)
Quarter: 2011Q2

REPORT INFORMATION
  Report Type: 
  Country: None (occurrence: None)
  Receive Date: 20110408
  Receipt Date: 20110406
  Transmission Date: 20111010
  Serious: Yes (Death)
  Sender: FDA-Public Use
  Company Number: A0921845A

PATIENT
  Sex: Female
  Weight: 67 kg

DRUGS (2)
  1. CAPECITABINE [Suspect]
     Route: 048
  2. LAPATINIB [Suspect]
     Route: 048

REACTIONS (1)
  - NERVOUS SYSTEM DISORDER [None]
